FAERS Safety Report 7133290-5 (Version None)
Quarter: 2010Q4

REPORT INFORMATION
  Report Type: 
  Country: None (occurrence: None)
  Receive Date: 20101202
  Receipt Date: 20101019
  Transmission Date: 20110411
  Serious: Yes (Life-Threatening, Other)
  Sender: FDA-Public Use
  Company Number: US-BAXTER-2008BH010977

PATIENT
  Age: 69 Year
  Sex: Female
  Weight: 63 kg

DRUGS (97)
  1. HEPARIN SODIUM INJECTION [Suspect]
     Indication: AORTIC VALVE REPLACEMENT
     Route: 042
     Dates: start: 20070220, end: 20070220
  2. HEPARIN SODIUM INJECTION [Suspect]
     Indication: HAEMODIALYSIS
     Route: 042
     Dates: start: 20070220, end: 20070220
  3. HEPARIN SODIUM INJECTION [Suspect]
     Indication: INTRAVENOUS CATHETER MANAGEMENT
     Route: 042
     Dates: start: 20070220, end: 20070220
  4. HEPARIN SODIUM INJECTION [Suspect]
     Route: 042
     Dates: start: 20070220, end: 20070220
  5. HEPARIN SODIUM INJECTION [Suspect]
     Route: 042
     Dates: start: 20070220, end: 20070220
  6. HEPARIN SODIUM INJECTION [Suspect]
     Route: 042
     Dates: start: 20070220, end: 20070220
  7. HEPARIN SODIUM INJECTION [Suspect]
     Route: 042
     Dates: start: 20070221, end: 20070221
  8. HEPARIN SODIUM INJECTION [Suspect]
     Route: 042
     Dates: start: 20070221, end: 20070221
  9. HEPARIN SODIUM INJECTION [Suspect]
     Route: 042
     Dates: start: 20070221, end: 20070221
  10. HEPARIN SODIUM INJECTION [Suspect]
     Route: 042
     Dates: start: 20070220, end: 20070220
  11. HEPARIN SODIUM INJECTION [Suspect]
     Route: 042
     Dates: start: 20070220, end: 20070220
  12. HEPARIN SODIUM INJECTION [Suspect]
     Route: 042
     Dates: start: 20070220, end: 20070220
  13. HEPARIN SODIUM INJECTION [Suspect]
     Route: 050
     Dates: start: 20070407, end: 20070407
  14. HEPARIN SODIUM INJECTION [Suspect]
     Route: 050
     Dates: start: 20070407, end: 20070407
  15. HEPARIN SODIUM INJECTION [Suspect]
     Route: 050
     Dates: start: 20070407, end: 20070407
  16. HEPARIN SODIUM INJECTION [Suspect]
     Route: 042
     Dates: start: 20070220, end: 20070220
  17. HEPARIN SODIUM INJECTION [Suspect]
     Route: 042
     Dates: start: 20070220, end: 20070220
  18. HEPARIN SODIUM INJECTION [Suspect]
     Route: 042
     Dates: start: 20070220, end: 20070220
  19. HEPARIN SODIUM INJECTION [Suspect]
     Route: 042
     Dates: start: 20070222, end: 20070224
  20. HEPARIN SODIUM INJECTION [Suspect]
     Route: 042
     Dates: start: 20070222, end: 20070224
  21. HEPARIN SODIUM INJECTION [Suspect]
     Route: 042
     Dates: start: 20070222, end: 20070224
  22. HEPARIN SODIUM INJECTION [Suspect]
     Route: 042
     Dates: start: 20070220, end: 20070220
  23. HEPARIN SODIUM INJECTION [Suspect]
     Route: 042
     Dates: start: 20070220, end: 20070220
  24. HEPARIN SODIUM INJECTION [Suspect]
     Route: 042
     Dates: start: 20070220, end: 20070220
  25. HEPARIN SODIUM INJECTION [Suspect]
     Route: 042
     Dates: start: 20070306, end: 20070306
  26. HEPARIN SODIUM INJECTION [Suspect]
     Route: 042
     Dates: start: 20070306, end: 20070306
  27. HEPARIN SODIUM INJECTION [Suspect]
     Route: 042
     Dates: start: 20070306, end: 20070306
  28. HEPARIN SODIUM INJECTION [Suspect]
     Route: 042
     Dates: start: 20070308, end: 20070308
  29. HEPARIN SODIUM INJECTION [Suspect]
     Route: 042
     Dates: start: 20070308, end: 20070308
  30. HEPARIN SODIUM INJECTION [Suspect]
     Route: 042
     Dates: start: 20070308, end: 20070308
  31. HEPARIN SODIUM INJECTION [Suspect]
     Route: 042
     Dates: start: 20070309, end: 20070309
  32. HEPARIN SODIUM INJECTION [Suspect]
     Route: 042
     Dates: start: 20070309, end: 20070309
  33. HEPARIN SODIUM INJECTION [Suspect]
     Route: 042
     Dates: start: 20070309, end: 20070309
  34. HEPARIN SODIUM INJECTION [Suspect]
     Route: 042
     Dates: start: 20070312, end: 20070312
  35. HEPARIN SODIUM INJECTION [Suspect]
     Route: 042
     Dates: start: 20070312, end: 20070312
  36. HEPARIN SODIUM INJECTION [Suspect]
     Route: 042
     Dates: start: 20070312, end: 20070312
  37. HEPARIN SODIUM INJECTION [Suspect]
     Route: 042
     Dates: start: 20070314, end: 20070314
  38. HEPARIN SODIUM INJECTION [Suspect]
     Route: 042
     Dates: start: 20070314, end: 20070314
  39. HEPARIN SODIUM INJECTION [Suspect]
     Route: 042
     Dates: start: 20070314, end: 20070314
  40. HEPARIN SODIUM INJECTION [Suspect]
     Route: 042
     Dates: start: 20070316, end: 20070316
  41. HEPARIN SODIUM INJECTION [Suspect]
     Route: 042
     Dates: start: 20070316, end: 20070316
  42. HEPARIN SODIUM INJECTION [Suspect]
     Route: 042
     Dates: start: 20070316, end: 20070316
  43. HEPARIN SODIUM INJECTION [Suspect]
     Route: 042
     Dates: start: 20070319, end: 20070319
  44. HEPARIN SODIUM INJECTION [Suspect]
     Route: 042
     Dates: start: 20070319, end: 20070319
  45. HEPARIN SODIUM INJECTION [Suspect]
     Route: 042
     Dates: start: 20070319, end: 20070319
  46. HEPARIN SODIUM INJECTION [Suspect]
     Route: 058
     Dates: start: 20070309, end: 20070320
  47. HEPARIN SODIUM INJECTION [Suspect]
     Route: 058
     Dates: start: 20070309, end: 20070320
  48. HEPARIN SODIUM INJECTION [Suspect]
     Route: 058
     Dates: start: 20070309, end: 20070320
  49. HEPARIN SODIUM INJECTION [Suspect]
     Route: 042
     Dates: start: 20070220, end: 20070309
  50. HEPARIN SODIUM INJECTION [Suspect]
     Route: 042
     Dates: start: 20070220, end: 20070309
  51. HEPARIN SODIUM INJECTION [Suspect]
     Route: 042
     Dates: start: 20070220, end: 20070309
  52. HEPARIN SODIUM INJECTION [Suspect]
     Route: 041
     Dates: start: 20070220, end: 20070221
  53. HEPARIN SODIUM INJECTION [Suspect]
     Route: 041
     Dates: start: 20070220, end: 20070221
  54. HEPARIN SODIUM INJECTION [Suspect]
     Route: 041
     Dates: start: 20070220, end: 20070221
  55. HEPARIN SODIUM INJECTION [Suspect]
     Route: 058
     Dates: start: 20070320, end: 20070408
  56. HEPARIN SODIUM INJECTION [Suspect]
     Route: 058
     Dates: start: 20070320, end: 20070408
  57. HEPARIN SODIUM INJECTION [Suspect]
     Route: 058
     Dates: start: 20070320, end: 20070408
  58. STARLIX [Concomitant]
     Indication: PRODUCT USED FOR UNKNOWN INDICATION
     Route: 065
  59. LANTUS [Concomitant]
     Indication: PRODUCT USED FOR UNKNOWN INDICATION
     Route: 065
  60. AZITHROMYCIN [Concomitant]
     Indication: PRODUCT USED FOR UNKNOWN INDICATION
     Route: 065
  61. CHERATUSSIN COUGH SYRUP [Concomitant]
     Indication: PRODUCT USED FOR UNKNOWN INDICATION
     Route: 048
  62. VITAMIN B-12 [Concomitant]
     Indication: PRODUCT USED FOR UNKNOWN INDICATION
     Route: 065
  63. AVELOX [Concomitant]
     Indication: PRODUCT USED FOR UNKNOWN INDICATION
     Route: 065
  64. METOPROLOL SUCCINATE [Concomitant]
     Indication: PRODUCT USED FOR UNKNOWN INDICATION
     Route: 065
  65. ALBUTEROL [Concomitant]
     Indication: PRODUCT USED FOR UNKNOWN INDICATION
     Route: 048
  66. BROMPHENIR./DEXTROMETHOR./GUAIFENESIN/TERPIN/ [Concomitant]
     Indication: PRODUCT USED FOR UNKNOWN INDICATION
     Route: 048
  67. LEVAQUIN [Concomitant]
     Indication: PRODUCT USED FOR UNKNOWN INDICATION
     Route: 065
  68. MILRINONE [Concomitant]
     Indication: PRODUCT USED FOR UNKNOWN INDICATION
     Route: 042
  69. INSULIN [Concomitant]
     Indication: PRODUCT USED FOR UNKNOWN INDICATION
     Route: 065
  70. AMIODARONE [Concomitant]
     Indication: PRODUCT USED FOR UNKNOWN INDICATION
     Route: 065
  71. VASOPRESSIN INJECTION [Concomitant]
     Indication: PRODUCT USED FOR UNKNOWN INDICATION
     Route: 042
  72. LEVOPHED [Concomitant]
     Indication: PRODUCT USED FOR UNKNOWN INDICATION
     Route: 042
  73. LEVOPHED [Concomitant]
     Route: 065
  74. NEO-SYNEPHRINOL [Concomitant]
     Indication: PRODUCT USED FOR UNKNOWN INDICATION
     Route: 042
  75. EPINEPHRINE [Concomitant]
     Indication: PRODUCT USED FOR UNKNOWN INDICATION
     Route: 042
  76. EPINEPHRINE [Concomitant]
     Route: 065
  77. POTASSIUM CHLORIDE [Concomitant]
     Indication: PRODUCT USED FOR UNKNOWN INDICATION
     Route: 065
  78. PROTAMINE SULFATE [Concomitant]
     Indication: PRODUCT USED FOR UNKNOWN INDICATION
     Route: 065
  79. MUPIROCIN [Concomitant]
     Indication: PRODUCT USED FOR UNKNOWN INDICATION
     Route: 065
  80. TYLENOL-500 [Concomitant]
     Indication: PRODUCT USED FOR UNKNOWN INDICATION
     Route: 065
  81. COMPAZINE [Concomitant]
     Indication: PRODUCT USED FOR UNKNOWN INDICATION
     Route: 065
  82. MAGNESIUM SULFATE [Concomitant]
     Indication: PRODUCT USED FOR UNKNOWN INDICATION
     Route: 065
  83. PROPOFOL [Concomitant]
     Indication: PRODUCT USED FOR UNKNOWN INDICATION
     Route: 042
  84. SODIUM BICARBONATE [Concomitant]
     Indication: PRODUCT USED FOR UNKNOWN INDICATION
     Route: 065
  85. SODIUM CHLORIDE [Concomitant]
     Indication: PRODUCT USED FOR UNKNOWN INDICATION
     Route: 065
  86. SODIUM CHLORIDE [Concomitant]
     Route: 065
  87. FENTANYL [Concomitant]
     Indication: PRODUCT USED FOR UNKNOWN INDICATION
     Route: 065
  88. MIDAZOLAM [Concomitant]
     Indication: PRODUCT USED FOR UNKNOWN INDICATION
     Route: 065
  89. LIDOCAINE HYDROCHLORIDE IN PLASTIC CONTAINER [Concomitant]
     Indication: PRODUCT USED FOR UNKNOWN INDICATION
     Route: 065
  90. MANNITOL [Concomitant]
     Indication: PRODUCT USED FOR UNKNOWN INDICATION
     Route: 065
  91. PHENYLEPHRINE HCL [Concomitant]
     Indication: PRODUCT USED FOR UNKNOWN INDICATION
     Route: 042
  92. MORPHINE [Concomitant]
     Indication: PRODUCT USED FOR UNKNOWN INDICATION
     Route: 065
  93. LASIX [Concomitant]
     Indication: PRODUCT USED FOR UNKNOWN INDICATION
     Route: 065
  94. PANTOPRAZOLE [Concomitant]
     Indication: PRODUCT USED FOR UNKNOWN INDICATION
     Route: 065
  95. DIGOXIN [Concomitant]
     Indication: PRODUCT USED FOR UNKNOWN INDICATION
     Route: 065
  96. ANCEF [Concomitant]
     Indication: PRODUCT USED FOR UNKNOWN INDICATION
     Route: 065
  97. CALCIUM CHLORIDE [Concomitant]
     Indication: PRODUCT USED FOR UNKNOWN INDICATION
     Route: 065

REACTIONS (38)
  - ABDOMINAL DISTENSION [None]
  - ACIDOSIS [None]
  - ANAEMIA [None]
  - ASTHENIA [None]
  - ATRIAL FIBRILLATION [None]
  - BLISTER [None]
  - CARDIAC ARREST [None]
  - CEREBRAL INFARCTION [None]
  - CLOSTRIDIAL INFECTION [None]
  - COUGH [None]
  - CYANOSIS [None]
  - DECREASED APPETITE [None]
  - DEPRESSION [None]
  - ENCEPHALOPATHY [None]
  - EPISTAXIS [None]
  - FACE OEDEMA [None]
  - GASTRITIS [None]
  - HAEMODYNAMIC INSTABILITY [None]
  - HAEMORRHAGE [None]
  - HEPATIC NECROSIS [None]
  - HYPERKALAEMIA [None]
  - HYPEROSMOLAR STATE [None]
  - HYPONATRAEMIA [None]
  - HYPOTENSION [None]
  - MALNUTRITION [None]
  - MOUTH HAEMORRHAGE [None]
  - NEUROPATHY PERIPHERAL [None]
  - PAIN [None]
  - PNEUMOTHORAX TRAUMATIC [None]
  - PULMONARY VALVE INCOMPETENCE [None]
  - RENAL FAILURE [None]
  - RESPIRATORY FAILURE [None]
  - SEPTIC SHOCK [None]
  - SKIN NECROSIS [None]
  - TACHYCARDIA [None]
  - THROMBOCYTOPENIA [None]
  - UNRESPONSIVE TO STIMULI [None]
  - WEIGHT DECREASED [None]
